FAERS Safety Report 20397538 (Version 2)
Quarter: 2022Q1

REPORT INFORMATION
  Report Type: Spontaneous
  Country: US (occurrence: US)
  Receive Date: 20220131
  Receipt Date: 20220201
  Transmission Date: 20220423
  Serious: Yes (Other)
  Sender: FDA-Public Use
  Company Number: US-ABBVIE-21K-163-3727255-00

PATIENT
  Sex: Female

DRUGS (1)
  1. HUMIRA [Suspect]
     Active Substance: ADALIMUMAB
     Indication: Product used for unknown indication
     Route: 058

REACTIONS (5)
  - Cholecystectomy [Unknown]
  - Ulcer [Recovering/Resolving]
  - Condition aggravated [Unknown]
  - Glucose tolerance impaired [Unknown]
  - Stress [Unknown]

NARRATIVE: CASE EVENT DATE: 20200101
